FAERS Safety Report 5949826-3 (Version None)
Quarter: 2008Q4

REPORT INFORMATION
  Report Type: 
  Country: None (occurrence: None)
  Receive Date: 20081112
  Receipt Date: 20081106
  Transmission Date: 20090506
  Serious: Yes (Other)
  Sender: FDA-Public Use
  Company Number: US-ASTRAZENECA-2008UW24812

PATIENT
  Age: 37 Year
  Sex: Female

DRUGS (3)
  1. CRESTOR [Suspect]
     Route: 048
  2. ARTHROTEC [Concomitant]
  3. LASIX [Concomitant]

REACTIONS (3)
  - ABNORMAL SENSATION IN EYE [None]
  - BLINDNESS [None]
  - VISION BLURRED [None]
